FAERS Safety Report 8528856-1 (Version None)
Quarter: 2012Q3

REPORT INFORMATION
  Report Type: 
  Country: None (occurrence: None)
  Receive Date: 20120723
  Receipt Date: 20120717
  Transmission Date: 20120928
  Serious: No
  Sender: FDA-Public Use
  Company Number: US-PFIZER INC-2012173459

PATIENT
  Sex: Male

DRUGS (5)
  1. CORDARONE [Suspect]
     Dosage: 200 MG, THREE TIMES A WEEK
     Dates: start: 20120101
  2. CORDARONE [Suspect]
     Dosage: 200 MG, UNK
  3. NIASPAN [Concomitant]
     Indication: BLOOD CHOLESTEROL INCREASED
     Dosage: 1500 MG, DAILY
  4. CORDARONE [Suspect]
     Dosage: 200 MG, 2X/DAY
     Dates: start: 20111118
  5. RAMIPRIL [Concomitant]
     Indication: HYPERTENSION
     Dosage: 2.5 MG, DAILY

REACTIONS (1)
  - INFECTION [None]
